FAERS Safety Report 17511880 (Version 1)
Quarter: 2020Q1

REPORT INFORMATION
  Report Type: Spontaneous
  Country: PL (occurrence: PL)
  Receive Date: 20200307
  Receipt Date: 20200307
  Transmission Date: 20200409
  Serious: Yes (Other)
  Sender: FDA-Public Use
  Company Number: PL-LEADING PHARMA LLC-PL-2020LEALIT00033

PATIENT
  Age: 45 Year
  Sex: Male

DRUGS (4)
  1. METOPROLOL. [Interacting]
     Active Substance: METOPROLOL
  2. HYDROCHLOROTHIAZIDE TABLETS USP [Suspect]
     Active Substance: HYDROCHLOROTHIAZIDE
  3. TELMISARTAN. [Suspect]
     Active Substance: TELMISARTAN
  4. NEBIVOLOL. [Suspect]
     Active Substance: NEBIVOLOL

REACTIONS (3)
  - Condition aggravated [Recovered/Resolved]
  - Left ventricle outflow tract obstruction [Recovered/Resolved]
  - Mitral valve disease [Recovered/Resolved]
